FAERS Safety Report 5595677-1 (Version None)
Quarter: 2008Q1

REPORT INFORMATION
  Report Type: 
  Country: None (occurrence: None)
  Receive Date: 20080118
  Receipt Date: 20080109
  Transmission Date: 20080703
  Serious: Yes (Hospitalization)
  Sender: FDA-Public Use
  Company Number: US-AMGEN-STX235402

PATIENT
  Sex: Male

DRUGS (10)
  1. ENBREL [Suspect]
     Indication: PSORIATIC ARTHROPATHY
     Route: 058
     Dates: start: 20030401
  2. ENBREL [Suspect]
     Indication: OSTEOARTHRITIS
     Dates: start: 20070101
  3. SYNTHROID [Concomitant]
  4. ALPRAZOLAM [Concomitant]
  5. ZOLOFT [Concomitant]
  6. NORVASC [Concomitant]
  7. METFORMIN HCL [Concomitant]
  8. DOXEPIN HCL [Concomitant]
  9. INSULIN [Concomitant]
  10. BEXTRA [Concomitant]

REACTIONS (4)
  - ARTHRALGIA [None]
  - DIABETIC RETINOPATHY [None]
  - JOINT SWELLING [None]
  - SUBARACHNOID HAEMORRHAGE [None]
